FAERS Safety Report 23526161 (Version 1)
Quarter: 2024Q1

REPORT INFORMATION
  Report Type: Spontaneous
  Country: US (occurrence: None)
  Receive Date: 20240215
  Receipt Date: 20240215
  Transmission Date: 20240410
  Serious: Yes (Other)
  Sender: FDA-Public Use
  Company Number: US-ROCHE-3504618

PATIENT
  Age: 33 Year
  Sex: Female

DRUGS (1)
  1. OCREVUS [Suspect]
     Active Substance: OCRELIZUMAB
     Indication: Multiple sclerosis
     Dosage: LAST DOSE MAY/2023
     Route: 065
     Dates: start: 2019

REACTIONS (7)
  - Deafness [Not Recovered/Not Resolved]
  - Eosinophilic fasciitis [Unknown]
  - Meningitis enteroviral [Unknown]
  - Joint swelling [Unknown]
  - Anosmia [Recovering/Resolving]
  - Peripheral swelling [Unknown]
  - Arthralgia [Unknown]

NARRATIVE: CASE EVENT DATE: 20230601
